FAERS Safety Report 9662636 (Version 2)
Quarter: 2013Q4

REPORT INFORMATION
  Report Type: Spontaneous
  Country: US (occurrence: US)
  Receive Date: 20131031
  Receipt Date: 20131031
  Transmission Date: 20140711
  Serious: Yes (Other)
  Sender: FDA-Public Use
  Company Number: US-NAPPMUNDI-USA-2010-0046836

PATIENT
  Sex: Male

DRUGS (16)
  1. OXYCONTIN (NDA 22-272) [Suspect]
     Indication: NEURALGIA
     Dosage: 80 MG, SEE TEXT
     Dates: start: 20100903
  2. OXYCODONE HCL IR CAPSULES [Concomitant]
     Indication: BREAKTHROUGH PAIN
     Dosage: 30 MG, UNK
  3. ROXICET [Concomitant]
     Indication: BREAKTHROUGH PAIN
     Dosage: 30 MG, Q4H
  4. CYMBALTA [Concomitant]
     Indication: PRODUCT USED FOR UNKNOWN INDICATION
     Dosage: 30 MG, DAILY
  5. FLOMAX                             /00889901/ [Concomitant]
     Indication: PRODUCT USED FOR UNKNOWN INDICATION
     Dosage: 8 MG, QID
  6. DETROL [Concomitant]
     Indication: BLADDER SPASM
     Dosage: 4 MG, NOCTE
  7. XANAX [Concomitant]
     Indication: ANXIETY
     Dosage: 0.5 MG, Q8H
  8. XANAX [Concomitant]
     Indication: MUSCLE SPASMS
  9. SENOKOT [Concomitant]
     Indication: CONSTIPATION
     Dosage: 2 TABLET, NOCTE
  10. MAGIC CLEANSE [Concomitant]
     Indication: FAECES HARD
     Dosage: 2 TABLET, NOCTE
  11. COLACE [Concomitant]
     Indication: FAECES HARD
     Dosage: 100 MG, TID
  12. LYRICA [Concomitant]
     Indication: PRODUCT USED FOR UNKNOWN INDICATION
     Dosage: 150 MG, QID
  13. MULTIVITAMINS [Concomitant]
     Dosage: UNK
  14. CALCIUM [Concomitant]
     Indication: PRODUCT USED FOR UNKNOWN INDICATION
     Dosage: UNK
  15. VITAMIN C                          /00008001/ [Concomitant]
     Indication: PRODUCT USED FOR UNKNOWN INDICATION
     Dosage: UNK
  16. VITAMIN D                          /00107901/ [Concomitant]
     Indication: PRODUCT USED FOR UNKNOWN INDICATION
     Dosage: UNK
     Dates: start: 20100903

REACTIONS (9)
  - Throat tightness [Unknown]
  - Urticaria [Unknown]
  - Drug ineffective [Unknown]
  - Hyperhidrosis [Unknown]
  - Cold sweat [Unknown]
  - Rash [Unknown]
  - Dysphagia [Unknown]
  - Dizziness [Unknown]
  - Pruritus [Unknown]
